FAERS Safety Report 4921997-7 (Version None)
Quarter: 2006Q1

REPORT INFORMATION
  Report Type: 
  Country: None (occurrence: None)
  Receive Date: 20060224
  Receipt Date: 20051202
  Transmission Date: 20060701
  Serious: Yes (Life-Threatening, Other)
  Sender: FDA-Public Use
  Company Number: JP-AVENTIS-200513647JP

PATIENT
  Age: 62 Year
  Sex: Male
  Weight: 53 kg

DRUGS (12)
  1. LANTUS [Suspect]
     Indication: DIABETES MELLITUS
     Route: 058
     Dates: start: 20050929, end: 20051117
  2. LANTUS [Suspect]
     Route: 058
  3. OPTICLIK (INSULIN INJECTION PEN) [Suspect]
  4. GLUFAST [Concomitant]
     Indication: DIABETES MELLITUS
     Route: 048
     Dates: start: 20050929
  5. MEDET [Concomitant]
     Indication: DIABETES MELLITUS
     Route: 048
     Dates: start: 20051005
  6. ALEVIATIN [Concomitant]
     Indication: EPILEPSY
     Route: 048
     Dates: start: 20050806
  7. ASPIRIN [Concomitant]
     Indication: ISCHAEMIA
     Route: 048
     Dates: start: 20020710
  8. AMLODIN [Concomitant]
     Indication: HYPERTENSION
     Route: 048
     Dates: start: 20020710
  9. PANALDIN [Concomitant]
     Indication: ISCHAEMIA
     Route: 048
     Dates: start: 20020710
  10. GLYCYRON [Concomitant]
     Indication: CHRONIC HEPATITIS
     Dosage: DOSE: 9 TABLETS/DAY
     Route: 048
     Dates: start: 20031220
  11. URSO [Concomitant]
     Indication: CHRONIC HEPATITIS
     Route: 048
     Dates: start: 20030920
  12. FRANDOL [Concomitant]
     Indication: ISCHAEMIA
     Dosage: DOSE: 1 SHEET/DAY
     Dates: start: 20020710

REACTIONS (3)
  - FALL [None]
  - HYPOGLYCAEMIA [None]
  - SUICIDE ATTEMPT [None]
